FAERS Safety Report 24797398 (Version 2)
Quarter: 2025Q1

REPORT INFORMATION
  Report Type: Spontaneous
  Country: CN (occurrence: CN)
  Receive Date: 20250102
  Receipt Date: 20250102
  Transmission Date: 20250409
  Serious: Yes (Hospitalization)
  Sender: JIANGSU HENGRUI PHARMACEUTICALS CO., LTD.
  Company Number: CN-JIANGSU HENGRUI PHARMACEUTICALS CO., LTD.-H2024244608

PATIENT
  Age: 74 Year
  Weight: 55 kg

DRUGS (1)
  1. PACLITAXEL [Suspect]
     Active Substance: PACLITAXEL
     Indication: Lung neoplasm malignant

REACTIONS (3)
  - Chills [Recovered/Resolved]
  - Blood pressure increased [Recovered/Resolved]
  - Hyperpyrexia [Recovered/Resolved]
